FAERS Safety Report 6386114-8 (Version None)
Quarter: 2009Q4

REPORT INFORMATION
  Report Type: 
  Country: None (occurrence: None)
  Receive Date: 20091002
  Receipt Date: 20081208
  Transmission Date: 20100525
  Serious: No
  Sender: FDA-Public Use
  Company Number: US-ASTRAZENECA-2008UW27249

PATIENT
  Age: 59 Year
  Sex: Female
  Weight: 70.3 kg

DRUGS (4)
  1. ARIMIDEX [Suspect]
     Indication: BREAST CANCER STAGE I
     Route: 048
     Dates: start: 20080701
  2. HERCEPTIN [Concomitant]
  3. ATENOLOL [Concomitant]
  4. ENALAPRIL MALEATE [Concomitant]

REACTIONS (5)
  - BLOOD PRESSURE INCREASED [None]
  - DYSGRAPHIA [None]
  - MENTAL IMPAIRMENT [None]
  - NIGHT SWEATS [None]
  - SPEECH DISORDER [None]
